FAERS Safety Report 6107352-5 (Version None)
Quarter: 2009Q1

REPORT INFORMATION
  Report Type: 
  Country: None (occurrence: None)
  Receive Date: 20090309
  Receipt Date: 20090224
  Transmission Date: 20090719
  Serious: Yes (Life-Threatening, Hospitalization)
  Sender: FDA-Public Use
  Company Number: JP-PFIZER INC-2009177471

PATIENT

DRUGS (7)
  1. CABASER [Suspect]
     Indication: SUPPRESSED LACTATION
     Route: 048
  2. SERENACE [Concomitant]
     Route: 048
  3. BIPERIDEN HYDROCHLORIDE TAB [Concomitant]
     Route: 048
  4. RISPERDAL [Concomitant]
     Route: 048
  5. NITRAZEPAM [Concomitant]
     Route: 048
  6. FERROUS CITRATE [Concomitant]
     Route: 048
  7. SELBEX [Concomitant]
     Route: 048

REACTIONS (2)
  - CARDIO-RESPIRATORY ARREST [None]
  - PULMONARY INFARCTION [None]
